FAERS Safety Report 10087054 (Version 1)
Quarter: 2014Q2

REPORT INFORMATION
  Report Type: Spontaneous
  Country: CN (occurrence: CN)
  Receive Date: 20140418
  Receipt Date: 20140418
  Transmission Date: 20141212
  Serious: Yes (Other)
  Sender: FDA-Public Use
  Company Number: CN-ABBVIE-14P-035-1227464-00

PATIENT
  Age: 48 Year
  Sex: Male

DRUGS (5)
  1. DEPAKINE CHRONO [Suspect]
     Indication: EPILEPSY
     Dosage: EXTENDED RELEASE
     Route: 048
     Dates: start: 2008
  2. DEPAKINE CHRONO [Suspect]
     Dosage: EXTENDED RELEASE
     Route: 048
     Dates: start: 2010, end: 20131223
  3. DEPAKINE CHRONO [Suspect]
     Dosage: EXTENDED RELEASE
     Route: 048
     Dates: start: 20140215, end: 20140228
  4. DEPAKINE [Suspect]
     Indication: EPILEPSY
     Route: 048
     Dates: start: 20140329, end: 20140410
  5. PHENOBARBITAL SODIUM [Concomitant]
     Indication: PRODUCT USED FOR UNKNOWN INDICATION
     Dates: start: 20131224, end: 20140328

REACTIONS (6)
  - Brain neoplasm [Unknown]
  - Vomiting [Unknown]
  - Epilepsy [Unknown]
  - Muscle twitching [Unknown]
  - Loss of consciousness [Unknown]
  - Urinary incontinence [Unknown]
